FAERS Safety Report 4534542-5 (Version None)
Quarter: 2004Q4

REPORT INFORMATION
  Report Type: 
  Country: None (occurrence: None)
  Receive Date: 20041214
  Receipt Date: 20041013
  Transmission Date: 20050328
  Serious: No
  Sender: FDA-Public Use
  Company Number: 2004241232US

PATIENT
  Age: 90 Year
  Sex: Female
  Weight: 63.5 kg

DRUGS (4)
  1. BEXTRA [Suspect]
     Indication: ARTHRITIS
     Dosage: 10 MG, BID, ORAL
     Route: 047
     Dates: start: 20040101
  2. DYAZIDE [Concomitant]
  3. ASPIRIN [Concomitant]
  4. MULTIVITAMINS (ERGOCALCIFEROL, RETINOL, PANTHENOL) [Concomitant]

REACTIONS (3)
  - DRUG INEFFECTIVE [None]
  - MOBILITY DECREASED [None]
  - PAIN EXACERBATED [None]
